FAERS Safety Report 8996857 (Version 1)
Quarter: 2012Q4

REPORT INFORMATION
  Report Type: Spontaneous
  Country: US (occurrence: None)
  Receive Date: 20121228
  Receipt Date: 20121228
  Transmission Date: 20130627
  Serious: Yes (Hospitalization)
  Sender: FDA-Public Use
  Company Number: None

PATIENT
  Age: 78 Year
  Sex: Male
  Weight: 88.45 kg

DRUGS (1)
  1. LEVOFLOXACIN [Suspect]
     Indication: MYOSITIS
     Route: 048
     Dates: start: 20121121, end: 20121201

REACTIONS (6)
  - Asthenia [None]
  - Abasia [None]
  - Mobility decreased [None]
  - Muscle swelling [None]
  - Tendon disorder [None]
  - Swelling [None]
